FAERS Safety Report 11143731 (Version 1)
Quarter: 2015Q2

REPORT INFORMATION
  Report Type: Spontaneous
  Country: US (occurrence: US)
  Receive Date: 20150528
  Receipt Date: 20150528
  Transmission Date: 20150821
  Serious: Yes (Life-Threatening, Hospitalization)
  Sender: FDA-Public Use
  Company Number: US-HOSPIRA-2877101

PATIENT
  Age: 47 Year
  Sex: Male

DRUGS (2)
  1. VANCOMYCIN [Concomitant]
     Active Substance: VANCOMYCIN
     Indication: SEPSIS
  2. PIPERACILLIN AND TAZOBACTAM [Suspect]
     Active Substance: PIPERACILLIN SODIUM\TAZOBACTAM SODIUM
     Indication: SEPSIS

REACTIONS (5)
  - Anaemia [Recovered/Resolved]
  - Cardiac arrest [Recovered/Resolved]
  - Renal failure [Recovered/Resolved]
  - Haemolysis [Recovered/Resolved]
  - Haemoglobinuria [Recovered/Resolved]
